FAERS Safety Report 6231634-X (Version None)
Quarter: 2009Q2

REPORT INFORMATION
  Report Type: 
  Country: None (occurrence: None)
  Receive Date: 20090616
  Receipt Date: 20090609
  Transmission Date: 20091009
  Serious: Yes (Death)
  Sender: FDA-Public Use
  Company Number: JP-WYE-H09624009

PATIENT
  Sex: Male

DRUGS (8)
  1. ZOSYN [Suspect]
     Indication: PNEUMONIA
     Route: 041
     Dates: start: 20090512, end: 20090515
  2. MEROPEN [Suspect]
     Indication: PNEUMONIA
     Route: 041
     Dates: start: 20090515, end: 20090525
  3. MAGNESIUM OXIDE [Concomitant]
     Indication: CONSTIPATION
     Route: 048
  4. URSODIOL [Concomitant]
     Indication: HEPATITIS C
     Route: 048
  5. GRAMALIL [Concomitant]
     Indication: ANXIETY
     Route: 048
  6. GRAMALIL [Concomitant]
     Indication: NEUROSIS
  7. CIPROXAN [Suspect]
     Indication: PNEUMONIA
     Route: 041
     Dates: start: 20090528, end: 20090528
  8. TAKEPRON [Concomitant]
     Indication: GASTRIC ULCER
     Route: 048

REACTIONS (2)
  - DIARRHOEA [None]
  - HAEMOLYTIC ANAEMIA [None]
